FAERS Safety Report 15094294 (Version 1)
Quarter: 2018Q2

REPORT INFORMATION
  Report Type: Report from Study
  Country: None (occurrence: GR)
  Receive Date: 20180630
  Receipt Date: 20180630
  Transmission Date: 20180711
  Serious: Yes (Death, Other)
  Sender: FDA-Public Use
  Company Number: GR-ABBVIE-18K-066-2405456-00

PATIENT
  Age: 73 Year
  Sex: Male

DRUGS (1)
  1. DUODOPA [Suspect]
     Active Substance: CARBIDOPA\LEVODOPA
     Indication: PARKINSON^S DISEASE
     Dosage: MORNING DOSE:10.0ML; CONTINUOUS RATE:5.5ML/H; EXTRA DOSE:3.5ML
     Route: 050
     Dates: start: 2009

REACTIONS (4)
  - Balance disorder [Fatal]
  - Fall [Fatal]
  - Cerebral haematoma [Fatal]
  - Coma [Fatal]

NARRATIVE: CASE EVENT DATE: 20180622
